FAERS Safety Report 8421364-8 (Version None)
Quarter: 2012Q2

REPORT INFORMATION
  Report Type: 
  Country: None (occurrence: None)
  Receive Date: 20120608
  Receipt Date: 20120531
  Transmission Date: 20120825
  Serious: Yes (Hospitalization)
  Sender: FDA-Public Use
  Company Number: PHHY2012DE047448

PATIENT
  Sex: Male
  Weight: 60 kg

DRUGS (10)
  1. INSIDON [Suspect]
     Indication: RESTLESSNESS
     Dosage: 100 MG
     Route: 048
     Dates: start: 20090101
  2. BISOPROLOL FUMARATE [Concomitant]
     Indication: HYPERTENSION
     Dosage: 5 MG, QD
     Route: 048
     Dates: start: 20090115
  3. FENTANYL [Concomitant]
     Indication: PAIN
     Dosage: 4 DF, QD
     Route: 062
     Dates: start: 20110101
  4. MOXONIDINE [Concomitant]
     Indication: HYPERTENSION
     Dosage: 0.4 MG, QD
     Route: 048
     Dates: start: 20090101
  5. ACETYLSALICYLIC ACID SRT [Concomitant]
     Indication: HYPERTENSION
     Dosage: 100 MG, QD
     Route: 048
     Dates: start: 20090101
  6. VOLTAREN [Suspect]
     Indication: PAIN
     Route: 048
     Dates: start: 20100101
  7. RAMIPRIL [Concomitant]
     Indication: HYPERTENSION
     Dosage: 10 MG, QD
     Route: 048
     Dates: start: 20060223
  8. BETA BLOCKING AGENTS [Concomitant]
  9. GLIBENCLAMIDE [Concomitant]
     Indication: DIABETES MELLITUS
     Dosage: 4.75 MG, QD
     Route: 048
     Dates: start: 20060223
  10. NSAID'S [Concomitant]

REACTIONS (1)
  - HYPERTENSIVE CRISIS [None]
